FAERS Safety Report 14731779 (Version 6)
Quarter: 2018Q3

REPORT INFORMATION
  Report Type: Report from Study
  Country: DE (occurrence: DE)
  Receive Date: 20180407
  Receipt Date: 20180705
  Transmission Date: 20181010
  Serious: Yes (Death, Hospitalization, Other)
  Sender: FDA-Public Use
  Company Number: DE-CONCORDIA PHARMACEUTICALS INC.-E2B_00010921

PATIENT
  Age: 40 Year
  Sex: Female
  Weight: 108 kg

DRUGS (21)
  1. COBIMETINIB. [Suspect]
     Active Substance: COBIMETINIB
     Indication: MALIGNANT MELANOMA
     Route: 048
     Dates: start: 20180220, end: 20180222
  2. VEMURAFENIB. [Suspect]
     Active Substance: VEMURAFENIB
     Route: 048
     Dates: start: 20180220, end: 20180222
  3. LEVETIRACETAM. [Concomitant]
     Active Substance: LEVETIRACETAM
     Indication: EPILEPSY
     Route: 048
     Dates: start: 20171101, end: 20180323
  4. PREDNISOLONE. [Suspect]
     Active Substance: PREDNISOLONE
     Dosage: INDICATION: STATUS POST PNEUMONITIS
     Route: 048
     Dates: start: 20180129, end: 20180204
  5. COBIMETINIB. [Suspect]
     Active Substance: COBIMETINIB
     Route: 048
     Dates: start: 20180308, end: 20180316
  6. DEXAMETHASONE. [Suspect]
     Active Substance: DEXAMETHASONE
     Route: 048
     Dates: start: 20180201, end: 20180201
  7. VEMURAFENIB. [Suspect]
     Active Substance: VEMURAFENIB
     Indication: MALIGNANT MELANOMA
     Route: 048
     Dates: start: 20180216, end: 20180216
  8. VEMURAFENIB. [Suspect]
     Active Substance: VEMURAFENIB
     Route: 048
     Dates: start: 20180220, end: 20180222
  9. PANTOPRAZOL [Concomitant]
     Active Substance: PANTOPRAZOLE SODIUM
     Indication: PROPHYLAXIS
     Route: 048
     Dates: start: 20170901, end: 20180415
  10. PREDNISOLONE. [Suspect]
     Active Substance: PREDNISOLONE
     Route: 048
     Dates: start: 20180205, end: 20180211
  11. COBIMETINIB. [Suspect]
     Active Substance: COBIMETINIB
     Route: 048
     Dates: start: 20180202, end: 20180216
  12. VEMURAFENIB. [Suspect]
     Active Substance: VEMURAFENIB
     Route: 048
     Dates: start: 20180308, end: 20180316
  13. PREDNISOLONE. [Suspect]
     Active Substance: PREDNISOLONE
     Indication: PNEUMONITIS
     Route: 048
     Dates: start: 20180219, end: 20180225
  14. DEXAMETHASONE. [Suspect]
     Active Substance: DEXAMETHASONE
     Indication: METASTASES TO CENTRAL NERVOUS SYSTEM
     Route: 048
     Dates: start: 20180409
  15. VEMURAFENIB. [Suspect]
     Active Substance: VEMURAFENIB
     Route: 048
     Dates: start: 20180216, end: 20180216
  16. SYMBICORT [Concomitant]
     Active Substance: BUDESONIDE\FORMOTEROL FUMARATE DIHYDRATE
     Indication: ASTHMA
     Route: 048
     Dates: start: 20120101, end: 20180404
  17. PREDNISOLONE. [Suspect]
     Active Substance: PREDNISOLONE
     Route: 048
     Dates: start: 20180212, end: 20180218
  18. DEXAMETHASONE. [Suspect]
     Active Substance: DEXAMETHASONE
     Route: 048
     Dates: start: 20180202, end: 20180207
  19. VEMURAFENIB. [Suspect]
     Active Substance: VEMURAFENIB
     Route: 048
     Dates: start: 20180202, end: 20180216
  20. DEXAMETHASONE. [Suspect]
     Active Substance: DEXAMETHASONE
     Route: 048
     Dates: start: 20180208, end: 20180214
  21. LEVETIRACETAM. [Concomitant]
     Active Substance: LEVETIRACETAM
     Route: 048
     Dates: start: 20180323

REACTIONS (59)
  - Nausea [Fatal]
  - Nervous system disorder [Fatal]
  - Oedema peripheral [Fatal]
  - Psychotic disorder [Fatal]
  - Hepatitis viral [Fatal]
  - Hypokalaemia [Fatal]
  - Dysphagia [Fatal]
  - Dyspnoea [Fatal]
  - Abdominal pain [Fatal]
  - Vomiting [Fatal]
  - Constipation [Fatal]
  - Fatigue [Fatal]
  - Atypical pneumonia [Fatal]
  - Anxiety [Fatal]
  - Encephalitis autoimmune [Fatal]
  - Haematochezia [Fatal]
  - Disorientation [Fatal]
  - Pneumonia viral [Fatal]
  - Anaemia [Fatal]
  - Nausea [Fatal]
  - Dysarthria [Fatal]
  - Balance disorder [Fatal]
  - Restlessness [Fatal]
  - Pyrexia [Fatal]
  - Organic brain syndrome [Fatal]
  - Hyperaesthesia [Fatal]
  - Transaminases increased [Fatal]
  - Diarrhoea [Fatal]
  - Computerised tomogram thorax abnormal [Fatal]
  - Dry mouth [Fatal]
  - C-reactive protein increased [Fatal]
  - Arthralgia [Fatal]
  - Sleep disorder [Fatal]
  - Status epilepticus [Fatal]
  - Vertigo [Fatal]
  - Lung disorder [Fatal]
  - Autoimmune hepatitis [Fatal]
  - Pain [Fatal]
  - Death [Fatal]
  - Relapsing fever [Fatal]
  - Vasculitis [Fatal]
  - Confusional state [Fatal]
  - Cough [Fatal]
  - Hepatic steatosis [Fatal]
  - Flatulence [Fatal]
  - Cough [Fatal]
  - Musculoskeletal stiffness [Fatal]
  - General physical health deterioration [Fatal]
  - Colitis [Fatal]
  - Myalgia [Fatal]
  - Alveolitis [Fatal]
  - Chills [Fatal]
  - Headache [Fatal]
  - Groin pain [Fatal]
  - Immune system disorder [Fatal]
  - Pain in extremity [Fatal]
  - Tremor [Fatal]
  - Neck pain [Fatal]
  - Insomnia [Fatal]

NARRATIVE: CASE EVENT DATE: 20180202
